FAERS Safety Report 17874744 (Version 1)
Quarter: 2020Q2

REPORT INFORMATION
  Report Type: Spontaneous
  Country: US (occurrence: US)
  Receive Date: 20200609
  Receipt Date: 20200609
  Transmission Date: 20200714
  Serious: Yes (Hospitalization, Other)
  Sender: FDA-Public Use
  Company Number: NVSC2020US158863

PATIENT
  Age: 39 Year
  Sex: Female

DRUGS (2)
  1. CALCIUM CARBONATE. [Suspect]
     Active Substance: CALCIUM CARBONATE
     Dosage: 6 G
     Route: 065
  2. CALCIUM CARBONATE. [Suspect]
     Active Substance: CALCIUM CARBONATE
     Indication: DYSPEPSIA
     Dosage: 1.5 G, QD
     Route: 065

REACTIONS (3)
  - Overdose [Unknown]
  - Milk-alkali syndrome [Recovered/Resolved]
  - Product use in unapproved indication [Unknown]
